FAERS Safety Report 8657763 (Version 3)
Quarter: 2012Q4

REPORT INFORMATION
  Report Type: 
  Country: US (occurrence: US)
  Receive Date: 20120710
  Receipt Date: 20121226
  Transmission Date: 20130627
  Serious: Yes (Hospitalization, Congenital Anomaly, Other)
  Sender: FDA-Public Use
  Company Number: US-PFIZER INC-2012162449

PATIENT
  Sex: Male
  Weight: 2.51 kg

DRUGS (9)
  1. ZOLOFT [Suspect]
     Indication: DEPRESSION
     Dosage: 50mg and 100mg
     Route: 064
     Dates: start: 1998, end: 201211
  2. SERTRALINE HCL [Suspect]
     Indication: DEPRESSION
     Dosage: 100 mg, UNK
     Route: 064
  3. PRENATAL VITAMINS [Concomitant]
     Dosage: UNK
     Route: 064
  4. MACROBID [Concomitant]
     Indication: URINARY TRACT INFECTION
     Dosage: UNK
     Route: 064
     Dates: start: 20051012
  5. BACTRIM [Concomitant]
     Indication: URINARY TRACT INFECTION
     Dosage: UNK
     Route: 064
     Dates: start: 20051129
  6. VICODIN [Concomitant]
     Dosage: UNK
     Route: 064
  7. FLEXERIL [Concomitant]
     Dosage: UNK
     Route: 064
  8. PROVENTIL /OLD FORM/ [Concomitant]
     Dosage: UNK
     Route: 064
  9. FOLIC ACID [Concomitant]
     Dosage: UNK
     Route: 064

REACTIONS (10)
  - Maternal exposure timing unspecified [Unknown]
  - Patent ductus arteriosus [Unknown]
  - Neonatal respiratory distress syndrome [Unknown]
  - Aortic aneurysm [Unknown]
  - Ear infection [Unknown]
  - Congenital cardiovascular anomaly [Unknown]
  - Heart disease congenital [Unknown]
  - Skull malformation [Unknown]
  - Cleft palate [Unknown]
  - Limb malformation [Unknown]
